FAERS Safety Report 9721856 (Version 1)
Quarter: 2013Q4

REPORT INFORMATION
  Report Type: Report from Study
  Country: JP (occurrence: JP)
  Receive Date: 20131201
  Receipt Date: 20131201
  Transmission Date: 20140711
  Serious: Yes (Death)
  Sender: FDA-Public Use
  Company Number: JP-TAKEDA-2013TJP003180

PATIENT
  Age: 75 Year
  Sex: Male
  Weight: 53 kg

DRUGS (8)
  1. LANSOPRAZOLE [Suspect]
     Indication: PROPHYLAXIS AGAINST GASTROINTESTINAL ULCER
     Dosage: 15 MG, QD
     Route: 048
     Dates: start: 20111022, end: 20120812
  2. UNISIA COMBINATION TABLETS HD [Concomitant]
     Dosage: 1 DF, QD
     Route: 048
     Dates: start: 20111022
  3. BAYASPIRIN [Concomitant]
     Indication: THROMBOSIS PROPHYLAXIS
     Dosage: 100 MG, 1 DAYS
     Route: 048
     Dates: end: 20120812
  4. NIFEDIPINE LA [Concomitant]
     Dosage: 20 MG, 1 DAYS
     Route: 048
  5. ADOAIR [Concomitant]
     Dosage: 2 GTT, 1 DAYS
     Route: 055
  6. CLEANAL [Concomitant]
     Dosage: 600 MG,1 DAYS
     Route: 048
  7. THEOLONG [Concomitant]
     Indication: ASTHMA
     Dosage: 300 MG, 1 DAYS
     Route: 048
     Dates: start: 20111224
  8. SULTANOL [Concomitant]
     Dosage: UNK UNK, PRN
     Route: 055

REACTIONS (1)
  - Chronic obstructive pulmonary disease [Fatal]
